FAERS Safety Report 24567646 (Version 1)
Quarter: 2024Q4

REPORT INFORMATION
  Report Type: Spontaneous
  Country: US (occurrence: US)
  Receive Date: 20241031
  Receipt Date: 20241031
  Transmission Date: 20250115
  Serious: No
  Sender: VIIV
  Company Number: US-VIIV HEALTHCARE-US2024AMR132846

PATIENT
  Sex: Male

DRUGS (1)
  1. ZIDOVUDINE [Suspect]
     Active Substance: ZIDOVUDINE
     Indication: HIV infection
     Dosage: UNK
     Route: 048
     Dates: start: 1994, end: 1996

REACTIONS (2)
  - Anaemia [Recovered/Resolved]
  - Vomiting [Recovered/Resolved]
